FAERS Safety Report 6138718-5 (Version None)
Quarter: 2009Q1

REPORT INFORMATION
  Report Type: 
  Country: None (occurrence: None)
  Receive Date: 20090331
  Receipt Date: 20090325
  Transmission Date: 20090719
  Serious: Yes (Death, Other)
  Sender: FDA-Public Use
  Company Number: ES-AVENTIS-200913024GDDC

PATIENT
  Age: 74 Year
  Sex: Female

DRUGS (10)
  1. TAXOTERE [Suspect]
     Route: 042
     Dates: start: 20080924, end: 20080924
  2. FARMORUBICIN                       /00699301/ [Suspect]
     Route: 042
     Dates: start: 20080924, end: 20080924
  3. AMIODARONE HCL [Concomitant]
  4. SPIRONOLACTONE [Concomitant]
  5. BISOPROLOL [Concomitant]
  6. LORAZEPAM [Concomitant]
  7. FUROSEMIDE [Concomitant]
  8. LANSOPRAZOL [Concomitant]
  9. HIDROSMIN [Concomitant]
  10. HIBOR [Concomitant]

REACTIONS (4)
  - GENERAL PHYSICAL HEALTH DETERIORATION [None]
  - RECTAL HAEMORRHAGE [None]
  - THROMBOCYTOPENIA [None]
  - VOMITING [None]
